FAERS Safety Report 7351314-7 (Version None)
Quarter: 2011Q1

REPORT INFORMATION
  Report Type: 
  Country: None (occurrence: None)
  Receive Date: 20110314
  Receipt Date: 20110228
  Transmission Date: 20110831
  Serious: Yes (Other)
  Sender: FDA-Public Use
  Company Number: PHHY2011GA12262

PATIENT
  Age: 21 Year
  Sex: Female

DRUGS (2)
  1. DICLOFENAC SODIUM [Suspect]
     Indication: TOOTHACHE
     Dosage: 1 CAPSULE A DAY
     Route: 048
     Dates: start: 20101224, end: 20110101
  2. PARACETAMOL [Suspect]
     Indication: TOOTHACHE
     Dosage: 2 TABLETS THRICE DAILY
     Route: 048
     Dates: start: 20101224, end: 20110101

REACTIONS (1)
  - ABDOMINAL PAIN UPPER [None]
